FAERS Safety Report 7954313-7 (Version None)
Quarter: 2011Q4

REPORT INFORMATION
  Report Type: 
  Country: None (occurrence: None)
  Receive Date: 20111202
  Receipt Date: 20111128
  Transmission Date: 20120403
  Serious: Yes (Other)
  Sender: FDA-Public Use
  Company Number: BR-ABBOTT-11P-020-0872221-00

PATIENT
  Age: 68 Year

DRUGS (1)
  1. HUMIRA [Suspect]
     Indication: PRODUCT USED FOR UNKNOWN INDICATION

REACTIONS (4)
  - TRANSVERSE SINUS THROMBOSIS [None]
  - BALANCE DISORDER [None]
  - PSYCHOMOTOR SKILLS IMPAIRED [None]
  - ISCHAEMIC STROKE [None]
